FAERS Safety Report 10070238 (Version 2)
Quarter: 2014Q2

REPORT INFORMATION
  Report Type: Spontaneous
  Country: US (occurrence: US)
  Receive Date: 20140410
  Receipt Date: 20140612
  Transmission Date: 20141212
  Serious: No
  Sender: FDA-Public Use
  Company Number: US-009507513-1404USA005532

PATIENT
  Sex: Male

DRUGS (1)
  1. CLARITIN LIQUIGELS [Suspect]
     Indication: SEASONAL ALLERGY
     Dosage: UNK, UNKNOWN
     Route: 048

REACTIONS (1)
  - Dry eye [Not Recovered/Not Resolved]
